FAERS Safety Report 13924464 (Version 1)
Quarter: 2017Q3

REPORT INFORMATION
  Report Type: Spontaneous
  Country: US (occurrence: US)
  Receive Date: 20170831
  Receipt Date: 20170831
  Transmission Date: 20171127
  Serious: No
  Sender: FDA-Public Use
  Company Number: US-009507513-1708USA009100

PATIENT

DRUGS (1)
  1. ASMANEX HFA [Suspect]
     Active Substance: MOMETASONE FUROATE
     Dosage: 200 MICROGRAM, UNK (STRENGTH: 200 MCG 120 DOSE)
     Route: 048

REACTIONS (4)
  - No adverse event [Unknown]
  - Product quality issue [Unknown]
  - Device malfunction [Unknown]
  - Incorrect dose administered [Unknown]
